FAERS Safety Report 5812598-7 (Version None)
Quarter: 2008Q3

REPORT INFORMATION
  Report Type: 
  Country: None (occurrence: None)
  Receive Date: 20080711
  Receipt Date: 20080627
  Transmission Date: 20090109
  Serious: Yes (Hospitalization, Other)
  Sender: FDA-Public Use
  Company Number: 2007BI024066

PATIENT
  Age: 57 Year
  Sex: Female
  Weight: 83.9154 kg

DRUGS (2)
  1. AVONEX [Suspect]
     Dosage: 30 UG; QW; IM; 30 UG; QW; IM; 30 UG; QW; IM
     Route: 030
     Dates: start: 19980101, end: 20030101
  2. AVONEX [Suspect]
     Dosage: 30 UG; QW; IM; 30 UG; QW; IM; 30 UG; QW; IM
     Route: 030
     Dates: start: 20030101

REACTIONS (5)
  - CORONARY ARTERY OCCLUSION [None]
  - DRUG TOXICITY [None]
  - HEPATIC FAILURE [None]
  - MYOCARDIAL INFARCTION [None]
  - RENAL FAILURE [None]
